FAERS Safety Report 24041767 (Version 1)
Quarter: 2024Q3

REPORT INFORMATION
  Report Type: Spontaneous
  Country: US (occurrence: US)
  Receive Date: 20240702
  Receipt Date: 20240702
  Transmission Date: 20241017
  Serious: No
  Sender: SAREPTA THERAPEUTICS
  Company Number: US-SAREPTA THERAPEUTICS INC.-SRP2024-004422

PATIENT
  Age: 8 Year
  Sex: Male
  Weight: 34.6 kg

DRUGS (8)
  1. EXONDYS 51 [Suspect]
     Active Substance: ETEPLIRSEN
     Indication: Duchenne muscular dystrophy
     Dosage: 1000 MILLIGRAM, WEEKLY
     Route: 042
     Dates: start: 20200616, end: 20240220
  2. EMFLAZA [Concomitant]
     Active Substance: DEFLAZACORT
     Indication: Product used for unknown indication
     Dosage: 22.75 MILLIGRAM PER MILLILITRE, 3.5 ML, EVERY SATURDAY AND SUNDAY
     Route: 048
  3. TYLENOL [Concomitant]
     Active Substance: ACETAMINOPHEN
     Indication: Product used for unknown indication
     Dosage: UNK, PRN
  4. IBUPROFEN [Concomitant]
     Active Substance: IBUPROFEN
     Indication: Product used for unknown indication
     Dosage: UNK, PRN
  5. TRIAMCINOLONE [Concomitant]
     Active Substance: TRIAMCINOLONE
     Indication: Product used for unknown indication
     Dosage: UNK, PRN
     Route: 061
  6. GUANFACINE [Concomitant]
     Active Substance: GUANFACINE
     Indication: Product used for unknown indication
     Dosage: 2 MILLIGRAM, QD
  7. LOSARTAN [Concomitant]
     Active Substance: LOSARTAN
     Indication: Product used for unknown indication
     Dosage: 25 MILLIGRAM, QD
     Route: 048
  8. MIRALAX [Concomitant]
     Active Substance: POLYETHYLENE GLYCOL 3350
     Indication: Product used for unknown indication
     Dosage: 17 GRAM, QD
     Route: 048

REACTIONS (1)
  - Influenza [Unknown]

NARRATIVE: CASE EVENT DATE: 20240227
